FAERS Safety Report 23457098 (Version 1)
Quarter: 2024Q1

REPORT INFORMATION
  Report Type: Spontaneous
  Country: None (occurrence: IT)
  Receive Date: 20240130
  Receipt Date: 20240130
  Transmission Date: 20240410
  Serious: Yes (Other)
  Sender: FDA-Public Use
  Company Number: IT-B.Braun Medical Inc.-2152314

PATIENT
  Age: 68 Year
  Sex: Male

DRUGS (3)
  1. HEPARIN SODIUM IN DEXTROSE [Suspect]
     Active Substance: HEPARIN SODIUM
     Indication: Product used for unknown indication
  2. LEUPROLIDE ACETATE [Suspect]
     Active Substance: LEUPROLIDE ACETATE
  3. XTANDI [Suspect]
     Active Substance: ENZALUTAMIDE

REACTIONS (2)
  - Pulmonary embolism [None]
  - Rash maculo-papular [None]
